FAERS Safety Report 16850635 (Version 1)
Quarter: 2019Q3

REPORT INFORMATION
  Report Type: Spontaneous
  Country: US (occurrence: US)
  Receive Date: 20190925
  Receipt Date: 20190925
  Transmission Date: 20191005
  Serious: No
  Sender: FDA-Public Use
  Company Number: US-THERAPEUTICSMD-2019TMD01637

PATIENT
  Age: 56 Year
  Sex: Female
  Weight: 70.3 kg

DRUGS (5)
  1. UNSPECIFIED INSULIN [Concomitant]
     Active Substance: INSULIN NOS
  2. IMVEXXY [Suspect]
     Active Substance: ESTRADIOL
     Indication: MENOPAUSE
     Dosage: 10 ?G, 1X/DAY AT NIGHT
     Route: 067
     Dates: start: 20190622, end: 20190623
  3. MELOXICAM. [Concomitant]
     Active Substance: MELOXICAM
  4. LEVOTHYROXINE. [Concomitant]
     Active Substance: LEVOTHYROXINE
  5. IMVEXXY [Suspect]
     Active Substance: ESTRADIOL
     Indication: DYSPAREUNIA
     Dosage: 10 ?G, 2X/WEEK AT NIGHT
     Route: 067
     Dates: start: 2019, end: 2019

REACTIONS (7)
  - Vulvovaginal discomfort [Not Recovered/Not Resolved]
  - Unevaluable event [Not Recovered/Not Resolved]
  - Drug ineffective [Unknown]
  - Emotional disorder [Not Recovered/Not Resolved]
  - Vulvovaginal burning sensation [Unknown]
  - Vulvovaginal pruritus [Not Recovered/Not Resolved]
  - Vulvovaginal dryness [Not Recovered/Not Resolved]

NARRATIVE: CASE EVENT DATE: 2019
